FAERS Safety Report 8491937-5 (Version None)
Quarter: 2012Q3

REPORT INFORMATION
  Report Type: 
  Country: None (occurrence: None)
  Receive Date: 20120706
  Receipt Date: 20120416
  Transmission Date: 20120928
  Serious: No
  Sender: FDA-Public Use
  Company Number: US-GLAXOSMITHKLINE-A0974637A

PATIENT
  Sex: Female

DRUGS (4)
  1. NASONEX [Concomitant]
  2. UNSPECIFIED MEDICATION [Concomitant]
  3. XOPENEX [Concomitant]
  4. FLOVENT [Suspect]
     Indication: ASTHMA
     Dosage: 2PUFF TWICE PER DAY
     Route: 055
     Dates: end: 20120414

REACTIONS (3)
  - TRAUMATIC LUNG INJURY [None]
  - TOTAL LUNG CAPACITY DECREASED [None]
  - DYSPNOEA [None]
